FAERS Safety Report 7961743-6 (Version None)
Quarter: 2011Q4

REPORT INFORMATION
  Report Type: 
  Country: None (occurrence: None)
  Receive Date: 20111207
  Receipt Date: 20111123
  Transmission Date: 20120403
  Serious: Yes (Other)
  Sender: FDA-Public Use
  Company Number: TR-MEDIMMUNE-MEDI-0014035

PATIENT

DRUGS (1)
  1. SYNAGIS [Suspect]
     Dates: start: 20110519, end: 20110519

REACTIONS (1)
  - APNOEA [None]
